FAERS Safety Report 20204839 (Version 1)
Quarter: 2021Q4

REPORT INFORMATION
  Report Type: Spontaneous
  Country: ES (occurrence: ES)
  Receive Date: 20211220
  Receipt Date: 20211220
  Transmission Date: 20220303
  Serious: Yes (Hospitalization, Other)
  Sender: FDA-Public Use
  Company Number: ES-AEMPS-1063741

PATIENT
  Age: 40 Year
  Sex: Female

DRUGS (3)
  1. QUETIAPINE [Suspect]
     Active Substance: QUETIAPINE
     Indication: Product used for unknown indication
     Dosage: 5250 MILLIGRAM TOTAL (21 QUETIAPINE 250 MG TABLETS)
     Route: 048
     Dates: start: 20210922, end: 20210922
  2. CLONAZEPAM [Suspect]
     Active Substance: CLONAZEPAM
     Indication: Product used for unknown indication
     Dosage: 40 MILLIGRAM TOTAL (20 TABLETS OF CLONAZEPAM 2 MG)
     Route: 048
     Dates: start: 20210922, end: 20210922
  3. LITHIUM CARBONATE [Suspect]
     Active Substance: LITHIUM CARBONATE
     Indication: Product used for unknown indication
     Dosage: 4800 MILLIGRAM TOTAL (12 TABLETS OF LITHIUM 400 MG)
     Route: 048
     Dates: start: 20210922, end: 20210922

REACTIONS (1)
  - Depressed level of consciousness [Recovered/Resolved]

NARRATIVE: CASE EVENT DATE: 20210922
